FAERS Safety Report 10569936 (Version 1)
Quarter: 2014Q4

REPORT INFORMATION
  Report Type: Spontaneous
  Country: BR (occurrence: BR)
  Receive Date: 20141107
  Receipt Date: 20141107
  Transmission Date: 20150529
  Serious: Yes (Other)
  Sender: FDA-Public Use
  Company Number: BR-ACCORD-026815

PATIENT
  Age: 73 Year
  Sex: Female
  Weight: 75 kg

DRUGS (6)
  1. ACCORD PACLITAXEL [Suspect]
     Active Substance: PACLITAXEL
     Indication: BREAST CANCER
     Dosage: 300 MG DAILY DOSE
     Route: 042
     Dates: start: 20140926, end: 20140926
  2. METOCLOPRAMIDE. [Concomitant]
     Active Substance: METOCLOPRAMIDE
     Indication: PROPHYLAXIS
     Route: 042
     Dates: start: 20140926, end: 20140926
  3. RANITIDINE [Concomitant]
     Active Substance: RANITIDINE\RANITIDINE HYDROCHLORIDE
     Indication: PROPHYLAXIS
     Dosage: DAILY DOSE 50 MG /2ML
     Route: 042
     Dates: start: 20140926, end: 20140926
  4. DEXAMETHASONE. [Concomitant]
     Active Substance: DEXAMETHASONE
     Indication: PROPHYLAXIS
     Dosage: SF 100 ML + DEXAMETASONE
     Route: 042
     Dates: start: 20140926, end: 20140926
  5. ONDANSETRON [Concomitant]
     Active Substance: ONDANSETRON
     Indication: PROPHYLAXIS
     Dosage: 8 MG/ 4 ML DAILY DOSE
     Route: 042
     Dates: start: 20140926, end: 20140926
  6. CISPLATIN. [Suspect]
     Active Substance: CISPLATIN
     Indication: BREAST CANCER
     Dosage: CISPLATIN 75 MG / M2 80% OF THE DOSE EVERY 21 DAYS
     Dates: start: 20140901

REACTIONS (8)
  - Asthenia [Recovered/Resolved]
  - Decreased appetite [Recovered/Resolved]
  - Diarrhoea [Recovered/Resolved]
  - Back pain [Recovered/Resolved]
  - Hypoxia [Recovered/Resolved]
  - Hypertension [Recovered/Resolved]
  - Chest pain [Recovered/Resolved]
  - Tachycardia [Recovered/Resolved]

NARRATIVE: CASE EVENT DATE: 20140922
